FAERS Safety Report 19281603 (Version 1)
Quarter: 2021Q2

REPORT INFORMATION
  Report Type: Spontaneous
  Country: PH (occurrence: PH)
  Receive Date: 20210520
  Receipt Date: 20210520
  Transmission Date: 20210717
  Serious: Yes (Death, Hospitalization, Other)
  Sender: FDA-Public Use
  Company Number: PH-SA-2021SA167541

PATIENT
  Age: 47 Year
  Sex: Male

DRUGS (1)
  1. TOUJEO [Suspect]
     Active Substance: INSULIN GLARGINE
     Indication: TYPE 2 DIABETES MELLITUS
     Dosage: UNK
     Route: 058
     Dates: start: 20210401, end: 20210503

REACTIONS (5)
  - Sepsis [Fatal]
  - COVID-19 [Recovered/Resolved]
  - Pneumonia [Fatal]
  - Oxygen saturation decreased [Recovered/Resolved]
  - Multiple organ dysfunction syndrome [Fatal]
